FAERS Safety Report 14239676 (Version 1)
Quarter: 2017Q4

REPORT INFORMATION
  Report Type: Spontaneous
  Country: US (occurrence: US)
  Receive Date: 20171130
  Receipt Date: 20171130
  Transmission Date: 20180321
  Serious: No
  Sender: FDA-Public Use
  Company Number: US-GLAXOSMITHKLINE-US2017181715

PATIENT
  Age: 78 Year
  Sex: Female

DRUGS (1)
  1. FLONASE [Suspect]
     Active Substance: FLUTICASONE PROPIONATE
     Indication: HYPERSENSITIVITY
     Dosage: 1 DF, BID (2 TIMES A DAY WITH ONE SPRAY IN EACH NOSTRIL )

REACTIONS (1)
  - Inappropriate schedule of drug administration [Unknown]
